FAERS Safety Report 15926434 (Version 2)
Quarter: 2019Q3

REPORT INFORMATION
  Report Type: Spontaneous
  Country: US (occurrence: US)
  Receive Date: 20190206
  Receipt Date: 20190819
  Transmission Date: 20191004
  Serious: No
  Sender: FDA-Public Use
  Company Number: US-MYLANLABS-2019M1004825

PATIENT
  Sex: Female
  Weight: 104 kg

DRUGS (2)
  1. LEVOTHYROXINE SODIUM TABLETS, USP [Suspect]
     Active Substance: LEVOTHYROXINE SODIUM
     Indication: HYPERTHYROIDISM
     Dosage: UNK
     Route: 048
     Dates: end: 20190116
  2. XANAX [Concomitant]
     Active Substance: ALPRAZOLAM
     Indication: ANXIETY
     Dosage: AS NEEDED 4 TIMES

REACTIONS (12)
  - Fluid retention [Unknown]
  - Nail discolouration [Unknown]
  - Condition aggravated [Unknown]
  - Anxiety [Unknown]
  - Feeling abnormal [Unknown]
  - Product dose omission [Unknown]
  - Weight increased [Unknown]
  - Peripheral swelling [Unknown]
  - Drug ineffective [Unknown]
  - Treatment noncompliance [Unknown]
  - Irritability [Unknown]
  - Product packaging issue [Unknown]
